FAERS Safety Report 8399816-9 (Version None)
Quarter: 2012Q1

REPORT INFORMATION
  Report Type: 
  Country: None (occurrence: None)
  Receive Date: 20120323
  Receipt Date: 20110207
  Transmission Date: 20120608
  Serious: Yes (Other)
  Sender: FDA-Public Use
  Company Number: 163-21880-11011194

PATIENT
  Age: 80 Year
  Sex: Female

DRUGS (5)
  1. CILOSTAZOL [Concomitant]
  2. REVLIMID [Suspect]
     Indication: MULTIPLE MYELOMA
     Dosage: 25 MG, 1 IN 1 D, PO
     Route: 048
     Dates: start: 20101124, end: 20110101
  3. ATENOLOL [Concomitant]
  4. LASIX [Concomitant]
  5. CRESTOR [Concomitant]

REACTIONS (4)
  - MALAISE [None]
  - RED BLOOD CELL COUNT DECREASED [None]
  - WHITE BLOOD CELL COUNT DECREASED [None]
  - PANCYTOPENIA [None]
